FAERS Safety Report 20902330 (Version 1)
Quarter: 2022Q2

REPORT INFORMATION
  Report Type: Spontaneous
  Country: US (occurrence: US)
  Receive Date: 20220601
  Receipt Date: 20220601
  Transmission Date: 20220721
  Serious: No
  Sender: FDA-Public Use
  Company Number: US-PFIZER INC-202200771694

PATIENT
  Age: 70 Year
  Sex: Male

DRUGS (1)
  1. GABAPENTIN [Suspect]
     Active Substance: GABAPENTIN
     Dosage: 600 MG, 3X/DAY

REACTIONS (2)
  - Weight increased [Unknown]
  - Swelling [Unknown]
